FAERS Safety Report 18272936 (Version 1)
Quarter: 2020Q3

REPORT INFORMATION
  Report Type: Spontaneous
  Country: NL (occurrence: NL)
  Receive Date: 20200916
  Receipt Date: 20200916
  Transmission Date: 20201103
  Serious: Yes (Other)
  Sender: FDA-Public Use
  Company Number: NL-ACCORD-200781

PATIENT
  Age: 66 Year
  Sex: Male
  Weight: 101 kg

DRUGS (10)
  1. VICTOZA INJVLST [Concomitant]
     Dosage: LIRAGLUTIDE INJVLST 6MG / ML / VICTOZA INJVLST 6MG / ML WWSP 3ML, 1.8 MG 1 X DAILY
  2. ZOLADEX [Concomitant]
     Active Substance: GOSERELIN ACETATE
     Dosage: GOSERELINE IMPLANTATION STICK 10.8 MG / ZOLADEX IMPLANTATION STICK 10.8 MG IN WWSP, 1 X PER 3 MONTHS
  3. ASCORBIC ACID/ERGOCALCIFEROL/FOLIC ACID/NICOTINAMIDE/PANTHENOL/RETINOL/RIBOFLAVIN/THIAMINE HYDROCHLO [Concomitant]
     Active Substance: ASCORBIC ACID\ERGOCALCIFEROL\FOLIC ACID\NIACIN\PANTHENOL\RETINOL\RIBOFLAVIN\THIAMINE HYDROCHLORIDE
  4. SIMVASTATIN. [Interacting]
     Active Substance: SIMVASTATIN
     Indication: PROPHYLAXIS
     Dosage: STRENGTH: 40 MG / BRAND NAME NOT SPECIFIED, 1 X DGS
     Dates: start: 2004, end: 20160419
  5. OXYCODONE/OXYCODONE HYDROCHLORIDE/OXYCODONE PECTINATE/OXYCODONE TEREPHTHALATE [Concomitant]
     Active Substance: OXYCODONE
     Dosage: OXYCODONE TABLET MGA 5 MG / BRAND NAME NOT SPECIFIED,2 X DAILY 3 X 5 MG
  6. OMEPRAZOLE. [Concomitant]
     Active Substance: OMEPRAZOLE
     Dosage: OMEPRAZOLE CAPSULE MGA 20 MG ? NON?CURRENT DRUG / BRAND NAME NOT?SPECIFIED, 1 X DAILY
  7. GLICLAZIDE [Concomitant]
     Active Substance: GLICLAZIDE
     Dosage: GLICLAZIDE TABLET MGA 80MG / BRAND NAME NOT SPECIFIED, 2 X DAILY
  8. METFORMIN [Concomitant]
     Active Substance: METFORMIN HYDROCHLORIDE
     Dosage: STRENGTH: 500 MG,  / BRAND NAME NOT SPECIFIED, 2 X DAILY
  9. OXYCODONE/OXYCODONE HYDROCHLORIDE/OXYCODONE PECTINATE/OXYCODONE TEREPHTHALATE [Concomitant]
     Active Substance: OXYCODONE
     Dosage: OXYCODONE CAPSULE 5MG / BRAND NAME NOT SPECIFIED, 1 TO 4 X DAILY AS NEEDED AT DO
  10. BICALUTAMIDE. [Suspect]
     Active Substance: BICALUTAMIDE
     Indication: PROSTATE CANCER
     Dosage: STRENGTH: 150 MG / BRAND NAME NOT SPECIFIED, 1 X DGS
     Dates: start: 20150818

REACTIONS (4)
  - Weight increased [Unknown]
  - Osteonecrosis [Recovered/Resolved]
  - Blood glucose fluctuation [Not Recovered/Not Resolved]
  - Drug interaction [Unknown]

NARRATIVE: CASE EVENT DATE: 201509
